FAERS Safety Report 22708535 (Version 2)
Quarter: 2025Q1

REPORT INFORMATION
  Report Type: Spontaneous
  Country: US (occurrence: US)
  Receive Date: 20230715
  Receipt Date: 20250222
  Transmission Date: 20250408
  Serious: Yes (Death, Other)
  Sender: AMGEN
  Company Number: US-AMGEN-USASP2023121440

PATIENT

DRUGS (2)
  1. PANITUMUMAB [Suspect]
     Active Substance: PANITUMUMAB
     Indication: Colorectal cancer metastatic
     Route: 065
  2. TELAGLENASTAT [Suspect]
     Active Substance: TELAGLENASTAT
     Indication: Colorectal cancer metastatic
     Route: 065

REACTIONS (13)
  - Death [Fatal]
  - Colorectal cancer metastatic [Unknown]
  - Adverse event [Unknown]
  - Blood alkaline phosphatase increased [Unknown]
  - Alanine aminotransferase increased [Unknown]
  - Nausea [Unknown]
  - Hypomagnesaemia [Unknown]
  - Vomiting [Unknown]
  - Fatigue [Unknown]
  - Paronychia [Unknown]
  - Rash [Unknown]
  - Anaemia [Unknown]
  - Stomatitis [Unknown]
